FAERS Safety Report 6111208-1 (Version None)
Quarter: 2009Q1

REPORT INFORMATION
  Report Type: 
  Country: None (occurrence: None)
  Receive Date: 20090309
  Receipt Date: 20090309
  Transmission Date: 20090719
  Serious: Yes (Life-Threatening)
  Sender: FDA-Public Use
  Company Number: None

PATIENT
  Age: 41 Year
  Sex: Female

DRUGS (1)
  1. IRON DEXTRAN [Suspect]
     Indication: ANAEMIA
     Dosage: 25MG ONCE IV BOLUS
     Route: 040
     Dates: start: 20090213, end: 20090213

REACTIONS (2)
  - CHEST PAIN [None]
  - DYSPNOEA [None]
